FAERS Safety Report 4451352-8 (Version None)
Quarter: 2004Q3

REPORT INFORMATION
  Report Type: 
  Country: None (occurrence: None)
  Receive Date: 20040916
  Receipt Date: 20040909
  Transmission Date: 20050211
  Serious: Yes (Death)
  Sender: FDA-Public Use
  Company Number: MY-MERCK-0409MYS00009

PATIENT
  Age: 50 Year
  Sex: Male

DRUGS (2)
  1. AZITHROMYCIN [Concomitant]
     Route: 065
     Dates: start: 20040901, end: 20040901
  2. CANCIDAS [Suspect]
     Indication: PNEUMONIA ASPERGILLUS
     Route: 042
     Dates: start: 20040908, end: 20040908

REACTIONS (1)
  - PROSTATE CANCER [None]
